FAERS Safety Report 7763465-3 (Version None)
Quarter: 2011Q3

REPORT INFORMATION
  Report Type: 
  Country: None (occurrence: None)
  Receive Date: 20110920
  Receipt Date: 20110916
  Transmission Date: 20111222
  Serious: Yes (Other)
  Sender: FDA-Public Use
  Company Number: FR-PFIZER INC-2011178135

PATIENT
  Age: 45 Year
  Sex: Female

DRUGS (3)
  1. VALDOXAN [Suspect]
     Indication: DEPRESSION
     Dosage: 25 MG, 1X/DAY
     Route: 048
     Dates: start: 20110301, end: 20110701
  2. ZOLOFT [Suspect]
     Indication: DEPRESSION
     Dosage: 25 MG, 1X/DAY
     Route: 048
     Dates: start: 20110301
  3. PROPRANOLOL [Concomitant]
     Indication: HYPERTENSION
     Dosage: 80 MG, 2X/DAY
     Route: 048

REACTIONS (2)
  - FEEDING DISORDER [None]
  - HYPERTRIGLYCERIDAEMIA [None]
